FAERS Safety Report 21846382 (Version 4)
Quarter: 2025Q1

REPORT INFORMATION
  Report Type: Report from Study
  Country: BR (occurrence: BR)
  Receive Date: 20230111
  Receipt Date: 20250325
  Transmission Date: 20250408
  Serious: Yes (Other)
  Sender: CELLTRION
  Company Number: BR-CELLTRION INC.-2023BR000141

PATIENT

DRUGS (25)
  1. RITUXIMAB-ABBS [Suspect]
     Active Substance: RITUXIMAB-ABBS
     Indication: Vasculitis
     Route: 042
     Dates: start: 20221208
  2. RITUXIMAB-ABBS [Suspect]
     Active Substance: RITUXIMAB-ABBS
     Indication: Microscopic polyangiitis
     Route: 042
     Dates: start: 20221221
  3. RITUXIMAB-ABBS [Suspect]
     Active Substance: RITUXIMAB-ABBS
     Route: 042
     Dates: start: 202308
  4. RITUXIMAB-ABBS [Suspect]
     Active Substance: RITUXIMAB-ABBS
     Route: 042
     Dates: start: 20240402
  5. FOLIC ACID [Concomitant]
     Active Substance: FOLIC ACID
     Indication: Disability
     Route: 048
     Dates: start: 2022
  6. CALCIUM CARBONATE [Concomitant]
     Active Substance: CALCIUM CARBONATE
     Indication: Disability
     Route: 048
     Dates: start: 2022
  7. COMPLEX B [BIOTIN;CALCIUM PANTOTHENATE;CYANOCOBALAMIN;FOLIC ACID;NICOT [Concomitant]
     Indication: Disability
     Route: 048
     Dates: start: 2022
  8. COMPLEX B [BIOTIN;CALCIUM PANTOTHENATE;CYANOCOBALAMIN;FOLIC ACID;NICOT [Concomitant]
     Indication: Supplementation therapy
  9. ALENDRONATE SODIUM [Concomitant]
     Active Substance: ALENDRONATE SODIUM
     Indication: Disability
     Dosage: 2 PILLS PER WEEK
     Route: 048
     Dates: start: 2021
  10. SPIRONOLACTONE [Concomitant]
     Active Substance: SPIRONOLACTONE
     Route: 048
     Dates: start: 2022
  11. OMEPRAZOLE [Concomitant]
     Active Substance: OMEPRAZOLE
     Indication: Antacid therapy
     Route: 048
     Dates: start: 2020
  12. PREDNISONE [Concomitant]
     Active Substance: PREDNISONE
     Indication: Vasculitis
     Route: 048
     Dates: start: 2022
  13. PREDNISONE [Concomitant]
     Active Substance: PREDNISONE
     Route: 048
  14. SIMVASTATIN [Concomitant]
     Active Substance: SIMVASTATIN
     Route: 048
     Dates: start: 2020
  15. FERROUS SULFATE [Concomitant]
     Active Substance: FERROUS SULFATE
     Indication: Hypovitaminosis
     Route: 048
     Dates: start: 2022
  16. RIVAROXABAN [Concomitant]
     Active Substance: RIVAROXABAN
     Indication: Thrombosis
     Route: 048
  17. FUROSEMIDE [Concomitant]
     Active Substance: FUROSEMIDE
     Indication: Diuretic therapy
     Dates: start: 2020
  18. FUROSEMIDE [Concomitant]
     Active Substance: FUROSEMIDE
     Indication: Diuretic therapy
  19. BACTRIM [Concomitant]
     Active Substance: SULFAMETHOXAZOLE\TRIMETHOPRIM
     Indication: Infection
  20. BACTRIM [Concomitant]
     Active Substance: SULFAMETHOXAZOLE\TRIMETHOPRIM
     Route: 048
  21. AMLODIPINE [Concomitant]
     Active Substance: AMLODIPINE BESYLATE
     Indication: Hypertension
     Route: 048
     Dates: start: 2020
  22. CHOLECALCIFEROL [Concomitant]
     Active Substance: CHOLECALCIFEROL
     Route: 048
     Dates: start: 2022
  23. DOXAZOSIN MESYLATE [Concomitant]
     Active Substance: DOXAZOSIN MESYLATE
     Route: 048
  24. METOPROLOL [Concomitant]
     Active Substance: METOPROLOL
     Indication: Hypertension
     Route: 048
     Dates: start: 2020
  25. TRIMETROPINA SULFAMETOXAZOL [Concomitant]
     Indication: Vasculitis
     Route: 048
     Dates: start: 2022

REACTIONS (13)
  - Abdominal pain [Not Recovered/Not Resolved]
  - Abdominal distension [Not Recovered/Not Resolved]
  - Chest pain [Not Recovered/Not Resolved]
  - Condition aggravated [Not Recovered/Not Resolved]
  - Poor quality sleep [Not Recovered/Not Resolved]
  - Dyspnoea [Not Recovered/Not Resolved]
  - Cough [Not Recovered/Not Resolved]
  - Insomnia [Unknown]
  - Pain [Unknown]
  - Intentional product use issue [Unknown]
  - Product availability issue [Unknown]
  - Therapy interrupted [Unknown]
  - Product dose omission issue [Unknown]

NARRATIVE: CASE EVENT DATE: 20221209
